FAERS Safety Report 8570726-7 (Version None)
Quarter: 2012Q3

REPORT INFORMATION
  Report Type: 
  Country: None (occurrence: None)
  Receive Date: 20120805
  Receipt Date: 20120516
  Transmission Date: 20120928
  Serious: No
  Sender: FDA-Public Use
  Company Number: US-009507513-2012SP023130

PATIENT

DRUGS (4)
  1. CLARITIN-D [Suspect]
     Indication: MEDICAL OBSERVATION
     Dosage: 5 MG, ONCE
     Route: 048
     Dates: start: 20120316
  2. CLARITIN-D [Suspect]
     Indication: NASAL CONGESTION
     Dosage: 5 MG, ONCE
     Route: 048
     Dates: start: 20120316
  3. CLARITIN-D [Suspect]
     Dosage: 5 MG, UNKNOWN
     Route: 048
     Dates: start: 20120301, end: 20120318
  4. FOSAMAX [Concomitant]
     Indication: OSTEOPOROSIS
     Dosage: UNK UNK, UNKNOWN

REACTIONS (3)
  - NASAL CONGESTION [None]
  - INSOMNIA [None]
  - DRUG EFFECT DECREASED [None]
